FAERS Safety Report 8829138 (Version 1)
Quarter: 2012Q4

REPORT INFORMATION
  Report Type: Spontaneous
  Country: US (occurrence: None)
  Receive Date: 20121005
  Receipt Date: 20121005
  Transmission Date: 20130627
  Serious: No
  Sender: FDA-Public Use
  Company Number: None

PATIENT
  Sex: Female
  Weight: 63.5 kg

DRUGS (2)
  1. MONTELUKAST [Suspect]
     Dosage: 30 -10mg once ady
  2. MONTELUKAST [Suspect]
     Indication: ASTHMA
     Dosage: 30 -10mg once ady

REACTIONS (3)
  - Asthma [None]
  - Dyspnoea [None]
  - Chest discomfort [None]
